FAERS Safety Report 9905201 (Version 2)
Quarter: 2014Q1

REPORT INFORMATION
  Report Type: Spontaneous
  Country: US (occurrence: US)
  Receive Date: 20140218
  Receipt Date: 20140218
  Transmission Date: 20141002
  Serious: No
  Sender: FDA-Public Use
  Company Number: US-GILEAD-2012-0052858

PATIENT
  Age: 49 Year
  Sex: Female
  Weight: 53.92 kg

DRUGS (3)
  1. LETAIRIS [Suspect]
     Indication: PULMONARY HYPERTENSION
     Dosage: UNK
     Dates: start: 20101201, end: 20110502
  2. FERROUS SULFATE [Concomitant]
  3. COUMADIN                           /00014802/ [Concomitant]

REACTIONS (1)
  - Hepatic function abnormal [Unknown]
